FAERS Safety Report 7933369-1 (Version None)
Quarter: 2011Q4

REPORT INFORMATION
  Report Type: 
  Country: None (occurrence: None)
  Receive Date: 20111122
  Receipt Date: 20111122
  Transmission Date: 20120403
  Serious: Yes (Life-Threatening, Hospitalization)
  Sender: FDA-Public Use
  Company Number: None

PATIENT
  Age: 46 Year
  Sex: Male
  Weight: 115.21 kg

DRUGS (2)
  1. POMALIDOMIDE -CC-4047-,IND109759 [Suspect]
     Indication: MULTIPLE MYELOMA
     Dosage: 2 MG
     Route: 048
     Dates: start: 20111025, end: 20111120
  2. ASPIRIN [Concomitant]
     Route: 048

REACTIONS (1)
  - PULMONARY EMBOLISM [None]
